FAERS Safety Report 17407611 (Version 1)
Quarter: 2020Q1

REPORT INFORMATION
  Report Type: Spontaneous
  Country: US (occurrence: US)
  Receive Date: 20200128
  Receipt Date: 20200128
  Transmission Date: 20200409
  Serious: Yes (Life-Threatening, Hospitalization, Disabling, Other)
  Sender: FDA-Public Use
  Company Number: None

PATIENT
  Age: 77 Year
  Sex: Male
  Weight: 89.81 kg

DRUGS (1)
  1. GABAPENTIN 300MG [Suspect]
     Active Substance: GABAPENTIN
     Indication: ANKYLOSING SPONDYLITIS
     Dosage: ?          QUANTITY:1 TABLET (S);?
     Route: 048
     Dates: start: 20191230, end: 20191230

REACTIONS (3)
  - Haemoglobin decreased [None]
  - Rhabdomyolysis [None]
  - White blood cell count increased [None]

NARRATIVE: CASE EVENT DATE: 20191230
